FAERS Safety Report 9364020 (Version 1)
Quarter: 2013Q2

REPORT INFORMATION
  Report Type: Spontaneous
  Country: US (occurrence: None)
  Receive Date: 20130620
  Receipt Date: 20130620
  Transmission Date: 20140414
  Serious: Yes (Other)
  Sender: FDA-Public Use
  Company Number: 7218304

PATIENT
  Age: 76 Year
  Sex: Female

DRUGS (3)
  1. LEVOTHYROXINE 100MCG + POTASSIUM IODIDE [Suspect]
     Indication: HYPOTHYROIDISM
     Dosage: LEVOTHYROXINE100MCG+POTASSIUM IODIDE 130 MCG (0.5 DF,1 IN 1 D)   ORAL
     Route: 048
     Dates: start: 2001
  2. BELOC ZOK (METOPROLOL SUCCINATE) (METOPROLOL SUCCINATE) [Concomitant]
  3. DYTIDE H (DYAZIDE) (HYDROCHLOROTHIAZIDE, TRIAMTERENE) [Concomitant]

REACTIONS (2)
  - Atrial fibrillation [None]
  - Arrhythmia [None]
